FAERS Safety Report 4276894-X (Version None)
Quarter: 2004Q1

REPORT INFORMATION
  Report Type: 
  Country: None (occurrence: None)
  Receive Date: 20040120
  Receipt Date: 20031226
  Transmission Date: 20041129
  Serious: Yes (Death)
  Sender: FDA-Public Use
  Company Number: 200323243GDDC

PATIENT
  Age: 41 Year
  Sex: Male

DRUGS (1)
  1. PAPAVERINE [Suspect]
     Dosage: 8000 MG/DAY PO
     Route: 048

REACTIONS (18)
  - AGONAL DEATH STRUGGLE [None]
  - BLOOD BICARBONATE DECREASED [None]
  - BLOOD CREATINE INCREASED [None]
  - BLOOD GLUCOSE INCREASED [None]
  - BLOOD SODIUM INCREASED [None]
  - CARDIAC ARREST [None]
  - CAROTID PULSE DECREASED [None]
  - COMA [None]
  - CONVULSION [None]
  - FLUSHING [None]
  - HYPOKALAEMIA [None]
  - INTENTIONAL OVERDOSE [None]
  - LACTIC ACIDOSIS [None]
  - PCO2 INCREASED [None]
  - PULSE ABSENT [None]
  - PUPIL FIXED [None]
  - VOMITING [None]
  - WHITE BLOOD CELL COUNT INCREASED [None]
